FAERS Safety Report 7702695-3 (Version None)
Quarter: 2011Q3

REPORT INFORMATION
  Report Type: 
  Country: None (occurrence: None)
  Receive Date: 20110817
  Receipt Date: 20110805
  Transmission Date: 20111222
  Serious: Yes (Hospitalization, Other)
  Sender: FDA-Public Use
  Company Number: 2010SP064419

PATIENT
  Age: 34 Year
  Sex: Female
  Weight: 95.2554 kg

DRUGS (1)
  1. NUVARING [Suspect]
     Indication: CONTRACEPTION
     Dates: start: 20080101, end: 20091201

REACTIONS (47)
  - MULTIPLE INJURIES [None]
  - EMOTIONAL DISTRESS [None]
  - RESPIRATORY ALKALOSIS [None]
  - SINUS DISORDER [None]
  - FATIGUE [None]
  - FEELING ABNORMAL [None]
  - PROTEIN C INCREASED [None]
  - SINUS POLYP [None]
  - CARDIOMEGALY [None]
  - WEIGHT INCREASED [None]
  - PELVIC PAIN [None]
  - HYPERCOAGULATION [None]
  - HEADACHE [None]
  - AMNESIA [None]
  - OBESITY [None]
  - TOOTH ABSCESS [None]
  - MIGRAINE [None]
  - ADENOMYOSIS [None]
  - PANIC ATTACK [None]
  - METRORRHAGIA [None]
  - DIZZINESS [None]
  - MENTAL STATUS CHANGES [None]
  - PULMONARY OEDEMA [None]
  - PLEURAL EFFUSION [None]
  - PNEUMONIA [None]
  - BLOOD ALBUMIN DECREASED [None]
  - ADJUSTMENT DISORDER [None]
  - CHEST PAIN [None]
  - DYSPNOEA EXERTIONAL [None]
  - PULMONARY HYPERTENSION [None]
  - ANXIETY [None]
  - LUNG DISORDER [None]
  - CONSTIPATION [None]
  - OEDEMA PERIPHERAL [None]
  - CELLULITIS [None]
  - ATELECTASIS [None]
  - OVARIAN CYST [None]
  - FEAR OF DEATH [None]
  - POST PROCEDURAL HAEMORRHAGE [None]
  - HYPOAESTHESIA [None]
  - HAEMOPTYSIS [None]
  - ASTHENIA [None]
  - PULMONARY EMBOLISM [None]
  - ENDOMETRIOSIS [None]
  - FIBRIN D DIMER INCREASED [None]
  - PAIN IN EXTREMITY [None]
  - PALPITATIONS [None]
